FAERS Safety Report 5203819-2 (Version None)
Quarter: 2007Q1

REPORT INFORMATION
  Report Type: 
  Country: None (occurrence: None)
  Receive Date: 20070109
  Receipt Date: 20070109
  Transmission Date: 20070707
  Serious: Yes (Other)
  Sender: FDA-Public Use
  Company Number: None

PATIENT
  Sex: Female
  Weight: 56.246 kg

DRUGS (1)
  1. TRINESSA [Suspect]
     Dosage: DISP # 1, ONCE DAILY
     Dates: start: 20050101

REACTIONS (2)
  - BREAST TENDERNESS [None]
  - PAIN [None]
